FAERS Safety Report 19394562 (Version 1)
Quarter: 2021Q2

REPORT INFORMATION
  Report Type: Spontaneous
  Country: IN (occurrence: IN)
  Receive Date: 20210609
  Receipt Date: 20210609
  Transmission Date: 20210717
  Serious: Yes (Life-Threatening, Hospitalization)
  Sender: FDA-Public Use
  Company Number: IN-MYLANLABS-2021M1033556

PATIENT
  Age: 18 Month
  Sex: Male
  Weight: 10 kg

DRUGS (9)
  1. ACETAMINOPHEN. [Suspect]
     Active Substance: ACETAMINOPHEN
     Indication: PRODUCT USED FOR UNKNOWN INDICATION
     Dosage: INADVERTENTLY ADMINISTERED 5?ML DROPS OF PARACETAMOL (1ML =100MG) INSTEAD OF 5?ML SYRUP..
     Route: 048
  2. SALINE                             /00075401/ [Suspect]
     Active Substance: SODIUM CHLORIDE
     Indication: TOXICITY TO VARIOUS AGENTS
     Dosage: UNK
  3. ACETYLCYSTEINE. [Suspect]
     Active Substance: ACETYLCYSTEINE
     Indication: TOXICITY TO VARIOUS AGENTS
     Dosage: 150 MILLIGRAM/KILOGRAM, OVER ONE HOUR
  4. ACETYLCYSTEINE. [Suspect]
     Active Substance: ACETYLCYSTEINE
     Dosage: 50 MILLIGRAM/KILOGRAM, OVER FOUR HOURS
  5. SODIUM BENZOATE [Suspect]
     Active Substance: SODIUM BENZOATE
     Indication: TOXICITY TO VARIOUS AGENTS
     Dosage: UNK
     Route: 065
  6. ACETYLCYSTEINE. [Suspect]
     Active Substance: ACETYLCYSTEINE
     Dosage: 100 MILLIGRAM/KILOGRAM, OVER 16 HOURS
  7. GLUCOSE [Suspect]
     Active Substance: DEXTROSE
     Indication: TOXICITY TO VARIOUS AGENTS
     Dosage: 6 MILLIGRAM/KILOGRAM, QH
  8. RIFAXIMIN. [Suspect]
     Active Substance: RIFAXIMIN
     Indication: TOXICITY TO VARIOUS AGENTS
     Dosage: UNK
     Route: 065
  9. LACTULOSE. [Suspect]
     Active Substance: LACTULOSE
     Indication: TOXICITY TO VARIOUS AGENTS
     Dosage: UNK
     Route: 065

REACTIONS (11)
  - Acute hepatic failure [Recovering/Resolving]
  - Encephalopathy [Recovered/Resolved]
  - Intracranial pressure increased [Recovering/Resolving]
  - Metabolic acidosis [Recovering/Resolving]
  - Product administration error [Unknown]
  - Accidental overdose [Recovering/Resolving]
  - Toxicity to various agents [Recovering/Resolving]
  - Coagulopathy [Recovering/Resolving]
  - Therapy non-responder [Unknown]
  - Hyperlactacidaemia [Recovering/Resolving]
  - Hyperammonaemia [Recovering/Resolving]
